FAERS Safety Report 5384098-2 (Version None)
Quarter: 2007Q3

REPORT INFORMATION
  Report Type: 
  Country: None (occurrence: None)
  Receive Date: 20070709
  Receipt Date: 20060718
  Transmission Date: 20080115
  Serious: Yes (Hospitalization)
  Sender: FDA-Public Use
  Company Number: US-2006-016844

PATIENT
  Age: 18 Year
  Sex: Male
  Weight: 86.2 kg

DRUGS (1)
  1. ULTRAVIST 370 [Suspect]
     Indication: UROGRAM
     Dosage: 100 ML, 1 DOSE, INTRAVENOUS
     Route: 042
     Dates: start: 20060524, end: 20060524

REACTIONS (1)
  - RENAL FAILURE ACUTE [None]
